FAERS Safety Report 8394596-5 (Version None)
Quarter: 2012Q2

REPORT INFORMATION
  Report Type: 
  Country: None (occurrence: None)
  Receive Date: 20120525
  Receipt Date: 20120525
  Transmission Date: 20120825
  Serious: Yes (Hospitalization)
  Sender: FDA-Public Use
  Company Number: None

PATIENT
  Sex: Male
  Weight: 101.2 kg

DRUGS (2)
  1. ALIMTA [Suspect]
     Indication: NON-SMALL CELL LUNG CANCER
     Dosage: 500MG/M2, Q 21DAYS, IV
     Route: 042
     Dates: start: 20100409
  2. APRICOXIB/PLACEBO [Suspect]
     Indication: NON-SMALL CELL LUNG CANCER
     Dosage: 400MG, DAILY, PO
     Route: 048
     Dates: start: 20100409

REACTIONS (8)
  - VOMITING [None]
  - AGITATION [None]
  - CONFUSIONAL STATE [None]
  - NAUSEA [None]
  - DECREASED APPETITE [None]
  - METASTASES TO CENTRAL NERVOUS SYSTEM [None]
  - METASTASES TO MENINGES [None]
  - DEHYDRATION [None]
